FAERS Safety Report 25972168 (Version 1)
Quarter: 2025Q4

REPORT INFORMATION
  Report Type: Spontaneous
  Country: EU (occurrence: EU)
  Receive Date: 20251029
  Receipt Date: 20251029
  Transmission Date: 20260117
  Serious: Yes (Hospitalization, Other)
  Sender: AMGEN
  Company Number: EU-AMGEN-POLSP2022044420

PATIENT
  Age: 56 Year
  Sex: Male

DRUGS (4)
  1. CARFILZOMIB [Suspect]
     Active Substance: CARFILZOMIB
     Indication: Plasma cell myeloma
     Dosage: 70 MILLIGRAM/SQ. METER, QWK,  1ST, 8TH AND 15 TH DAYS OF EACH 28 DAYS
     Route: 042
     Dates: start: 2021
  2. CARFILZOMIB [Suspect]
     Active Substance: CARFILZOMIB
     Dosage: 56 MILLIGRAM/SQ. METER
     Route: 040
     Dates: start: 202207
  3. DARATUMUMAB [Suspect]
     Active Substance: DARATUMUMAB
     Indication: Plasma cell myeloma
     Dosage: 1800 MG, SECOND CYCLE ,EVERY WEEK FOR 8 WEEKS, THEN EVERY 2 WEEKS IN CYCLES 3-6, AND EVERY 4 WEEKS T
     Route: 058
     Dates: start: 2021
  4. DEXAMETHASONE [Suspect]
     Active Substance: DEXAMETHASONE
     Indication: Plasma cell myeloma
     Dosage: UNK
     Route: 065
     Dates: start: 2021

REACTIONS (3)
  - Respiratory failure [Recovered/Resolved]
  - Interstitial lung disease [Recovered/Resolved]
  - Off label use [Unknown]

NARRATIVE: CASE EVENT DATE: 20210101
